FAERS Safety Report 18499082 (Version 1)
Quarter: 2020Q4

REPORT INFORMATION
  Report Type: Spontaneous
  Country: US (occurrence: US)
  Receive Date: 20201112
  Receipt Date: 20201112
  Transmission Date: 20210114
  Serious: Yes (Hospitalization, Other)
  Sender: FDA-Public Use
  Company Number: US-TEVA-2020-US-1846349

PATIENT
  Age: 17 Year
  Sex: Female

DRUGS (8)
  1. PRALATREXATE [Suspect]
     Active Substance: PRALATREXATE
     Indication: NON-HODGKIN^S LYMPHOMA STAGE IV
     Dosage: HE RECEIVED 2 CYCLES OF PRALATREXATE 30 MG/M2/DOSE WEEKLY X 3 DOSES COMBINED WITH CYCLOPHOSPHAMID...
     Route: 065
  2. PRALATREXATE [Suspect]
     Active Substance: PRALATREXATE
     Indication: HEPATOSPLENIC T-CELL LYMPHOMA
  3. PREDNISONE. [Suspect]
     Active Substance: PREDNISONE
     Indication: NON-HODGKIN^S LYMPHOMA STAGE IV
     Dosage: SHE RECEIVED TWO CYCLES OF COMBINED PRXCHP THERAPY CONSISTING PREDNISONE
     Route: 065
  4. PREDNISONE. [Suspect]
     Active Substance: PREDNISONE
     Indication: HEPATOSPLENIC T-CELL LYMPHOMA
  5. CYCLOPHOSPHAMIDE. [Suspect]
     Active Substance: CYCLOPHOSPHAMIDE
     Indication: NON-HODGKIN^S LYMPHOMA STAGE IV
     Dosage: SHE RECEIVED TWO CYCLES OF COMBINED PRXCHP THERAPY CONSISTING CYCLOPHOSPHAMIDE
     Route: 065
  6. DOXORUBICIN [Suspect]
     Active Substance: DOXORUBICIN
     Indication: HEPATOSPLENIC T-CELL LYMPHOMA
  7. CYCLOPHOSPHAMIDE. [Suspect]
     Active Substance: CYCLOPHOSPHAMIDE
     Indication: HEPATOSPLENIC T-CELL LYMPHOMA
  8. DOXORUBICIN [Suspect]
     Active Substance: DOXORUBICIN
     Indication: NON-HODGKIN^S LYMPHOMA STAGE IV
     Dosage: SHE RECEIVED TWO CYCLES OF COMBINED PRXCHP THERAPY CONSISTING DOXORUBICIN
     Route: 065

REACTIONS (2)
  - Mucosal inflammation [Recovered/Resolved]
  - Neutropenia [Unknown]
